FAERS Safety Report 6077771-4 (Version None)
Quarter: 2009Q1

REPORT INFORMATION
  Report Type: 
  Country: None (occurrence: None)
  Receive Date: 20090213
  Receipt Date: 20090202
  Transmission Date: 20090719
  Serious: Yes (Other)
  Sender: FDA-Public Use
  Company Number: US-PFIZER INC-2009165157

PATIENT
  Sex: Male
  Weight: 23.583 kg

DRUGS (3)
  1. AZITHROMYCIN [Suspect]
     Dosage: UNK
     Dates: start: 20080101, end: 20090201
  2. TYLENOL [Concomitant]
     Dosage: UNK
  3. MOTRIN [Concomitant]
     Dosage: UNK

REACTIONS (5)
  - ABASIA [None]
  - ARTHRITIS [None]
  - EYE SWELLING [None]
  - JOINT SWELLING [None]
  - OEDEMA PERIPHERAL [None]
